FAERS Safety Report 24191979 (Version 1)
Quarter: 2024Q3

REPORT INFORMATION
  Report Type: Spontaneous
  Country: IT (occurrence: IT)
  Receive Date: 20240809
  Receipt Date: 20240809
  Transmission Date: 20241017
  Serious: Yes (Death, Hospitalization)
  Sender: STRIDES
  Company Number: IT-STRIDES ARCOLAB LIMITED-2024SP009761

PATIENT
  Age: 39 Year
  Sex: Male

DRUGS (20)
  1. FUROSEMIDE [Suspect]
     Active Substance: FUROSEMIDE
     Indication: Polyserositis
     Dosage: UNK
     Route: 065
     Dates: start: 202212
  2. FUROSEMIDE [Suspect]
     Active Substance: FUROSEMIDE
     Dosage: UNK, RE-INITIATED
     Route: 065
     Dates: start: 2023
  3. PREDNISOLONE [Suspect]
     Active Substance: PREDNISOLONE
     Indication: Immune-mediated hepatitis
     Dosage: UNK
     Route: 065
     Dates: start: 202212
  4. MYCOPHENOLATE MOFETIL [Suspect]
     Active Substance: MYCOPHENOLATE MOFETIL
     Indication: Immune-mediated hepatitis
     Dosage: 500 MILLIGRAM, BID
     Route: 065
     Dates: start: 2023
  5. URSODIOL [Suspect]
     Active Substance: URSODIOL
     Indication: Immune-mediated hepatitis
     Dosage: 300 MILLIGRAM, TID
     Route: 065
     Dates: start: 2023
  6. IPILIMUMAB [Suspect]
     Active Substance: IPILIMUMAB
     Indication: Metastatic malignant melanoma
     Dosage: UNK
     Route: 065
  7. NIVOLUMAB [Suspect]
     Active Substance: NIVOLUMAB
     Indication: Metastatic malignant melanoma
     Dosage: UNK
     Route: 065
  8. NIVOLUMAB [Suspect]
     Active Substance: NIVOLUMAB
     Dosage: 480 MILLIGRAM, EVERY 4 WEEKS, INFUSION; MAINTENANCE THERAPY
     Route: 065
     Dates: start: 202210
  9. METHYLPREDNISOLONE [Suspect]
     Active Substance: METHYLPREDNISOLONE
     Indication: Immune-mediated hepatitis
     Dosage: UNK
     Route: 065
     Dates: start: 202212
  10. METHYLPREDNISOLONE [Suspect]
     Active Substance: METHYLPREDNISOLONE
     Dosage: UNK, RE-INITIATED
     Route: 065
     Dates: start: 2023
  11. METHYLPREDNISOLONE [Suspect]
     Active Substance: METHYLPREDNISOLONE
     Dosage: 1 MILLIGRAM/KILOGRAM
     Route: 065
     Dates: start: 2023
  12. CANRENONE [Suspect]
     Active Substance: CANRENONE
     Indication: Polyserositis
     Dosage: 100 MILLIGRAM, BID
     Route: 065
     Dates: start: 2023
  13. COTRIMOXAZOLE [Suspect]
     Active Substance: SULFAMETHOXAZOLE\TRIMETHOPRIM
     Indication: Antibiotic prophylaxis
     Dosage: UNK
     Route: 065
     Dates: start: 2023
  14. LEVOTHYROXINE [Suspect]
     Active Substance: LEVOTHYROXINE\LEVOTHYROXINE SODIUM
     Indication: Hypothyroidism
     Dosage: UNK
     Route: 065
  15. EDOXABAN [Suspect]
     Active Substance: EDOXABAN
     Indication: Superficial vein thrombosis
     Dosage: UNK
     Route: 065
  16. ENCORAFENIB [Suspect]
     Active Substance: ENCORAFENIB
     Indication: Metastatic malignant melanoma
     Dosage: UNK FOR 12 WEEKS
     Route: 065
     Dates: start: 202202
  17. BINIMETINIB [Suspect]
     Active Substance: BINIMETINIB
     Indication: Metastatic malignant melanoma
     Dosage: UNK FOR 12 WEEKS
     Route: 065
     Dates: start: 202202
  18. ENOXAPARIN [Suspect]
     Active Substance: ENOXAPARIN
     Indication: Superficial vein thrombosis
     Dosage: UNK
     Route: 065
     Dates: start: 2023
  19. PEMBROLIZUMAB [Suspect]
     Active Substance: PEMBROLIZUMAB
     Indication: Metastatic malignant melanoma
     Dosage: UNK
     Route: 065
  20. IMMUNE GLOBULIN NOS [Suspect]
     Active Substance: IMMUNE GLOBULIN NOS
     Indication: Immune-mediated hepatitis
     Dosage: UNK
     Route: 065
     Dates: start: 2023

REACTIONS (11)
  - Death [Fatal]
  - Neurosensory hypoacusis [Unknown]
  - Haematoma [Unknown]
  - Disinhibition [Unknown]
  - Cognitive disorder [Unknown]
  - Neoplasm recurrence [Unknown]
  - Pseudomonas infection [Unknown]
  - Varicella zoster virus infection [Unknown]
  - Cytomegalovirus infection [Recovered/Resolved]
  - Treatment failure [Unknown]
  - Off label use [Unknown]

NARRATIVE: CASE EVENT DATE: 20230101
